FAERS Safety Report 5339358-8 (Version None)
Quarter: 2007Q2

REPORT INFORMATION
  Report Type: 
  Country: None (occurrence: None)
  Receive Date: 20070322
  Receipt Date: 20070105
  Transmission Date: 20071010
  Serious: Yes (Other)
  Sender: FDA-Public Use
  Company Number: 200710052BCC

PATIENT
  Age: 60 Year
  Sex: Male
  Weight: 78.9259 kg

DRUGS (5)
  1. ALEVE [Suspect]
     Indication: MYALGIA
     Dosage: 220 MG, HS, ORAL
     Route: 048
     Dates: start: 20070103
  2. RHINOCORT [Suspect]
     Dosage: NASAL
     Route: 045
  3. CLARINEX [Suspect]
  4. ACCURETIC [Suspect]
  5. MULTI-VITAMIN [Concomitant]

REACTIONS (7)
  - BURNING SENSATION [None]
  - DIZZINESS [None]
  - HEADACHE [None]
  - HEART RATE INCREASED [None]
  - HYPOTENSION [None]
  - PRURITUS [None]
  - SYNCOPE [None]
